FAERS Safety Report 5929866-0 (Version None)
Quarter: 2008Q4

REPORT INFORMATION
  Report Type: 
  Country: None (occurrence: None)
  Receive Date: 20081024
  Receipt Date: 20081014
  Transmission Date: 20090506
  Serious: Yes (Hospitalization)
  Sender: FDA-Public Use
  Company Number: FR-ROCHE-591880

PATIENT
  Sex: Male

DRUGS (4)
  1. RIVOTRIL [Suspect]
     Indication: ANXIETY
     Route: 048
     Dates: start: 20080515
  2. IMOVANE [Suspect]
     Indication: INSOMNIA
     Dosage: DRUG REPORTED AS IMOVANE 7.5
     Route: 048
     Dates: start: 20080912
  3. ABILIFY [Suspect]
     Dosage: DRUG REPORTED AS ABILIFY 15 MG
     Route: 048
  4. TRANXENE [Suspect]
     Indication: ANXIETY
     Route: 048
     Dates: start: 20080915, end: 20080916

REACTIONS (2)
  - FIXED ERUPTION [None]
  - TOXIC SKIN ERUPTION [None]
